FAERS Safety Report 11763091 (Version 1)
Quarter: 2015Q4

REPORT INFORMATION
  Report Type: Spontaneous
  Country: US (occurrence: US)
  Receive Date: 20151120
  Receipt Date: 20151120
  Transmission Date: 20160304
  Serious: No
  Sender: FDA-Public Use
  Company Number: US-ELI_LILLY_AND_COMPANY-US201302009363

PATIENT
  Age: 59 Year
  Sex: Female

DRUGS (1)
  1. FORTEO [Suspect]
     Active Substance: TERIPARATIDE
     Indication: OSTEOPOROSIS
     Dosage: 20 UG, QD
     Dates: start: 20130220

REACTIONS (12)
  - Feeling abnormal [Recovered/Resolved]
  - Nasopharyngitis [Recovered/Resolved]
  - Headache [Recovered/Resolved]
  - Pain [Recovered/Resolved]
  - Photopsia [Recovered/Resolved]
  - Musculoskeletal pain [Unknown]
  - Pain in extremity [Unknown]
  - Gingival pain [Unknown]
  - Oral pain [Unknown]
  - Fatigue [Unknown]
  - Arthralgia [Unknown]
  - Dizziness [Recovered/Resolved]

NARRATIVE: CASE EVENT DATE: 201302
